FAERS Safety Report 9030186 (Version 1)
Quarter: 2013Q1

REPORT INFORMATION
  Report Type: Spontaneous
  Country: US (occurrence: US)
  Receive Date: 20130125
  Receipt Date: 20130125
  Transmission Date: 20140127
  Serious: No
  Sender: FDA-Public Use
  Company Number: US-009507513-1301USA003007

PATIENT
  Sex: 0

DRUGS (1)
  1. TICE BCG LIVE [Suspect]
     Dosage: 1 DF, UNK
     Route: 043
     Dates: start: 20130103, end: 20130103

REACTIONS (2)
  - Incorrect storage of drug [Unknown]
  - No adverse event [Unknown]
